FAERS Safety Report 21376968 (Version 4)
Quarter: 2023Q2

REPORT INFORMATION
  Report Type: Spontaneous
  Country: IN (occurrence: IN)
  Receive Date: 20220926
  Receipt Date: 20230622
  Transmission Date: 20230721
  Serious: Yes (Hospitalization)
  Sender: FDA-Public Use
  Company Number: IN-PFIZER INC-2021068826

PATIENT
  Age: 52 Year
  Sex: Male

DRUGS (1)
  1. DACOMITINIB [Suspect]
     Active Substance: DACOMITINIB
     Dosage: 30 MG, 1X/DAY
     Route: 048
     Dates: start: 20210122

REACTIONS (5)
  - Blood glucose increased [Unknown]
  - Pyrexia [Unknown]
  - Dengue fever [Unknown]
  - Illness [Unknown]
  - Product dispensing error [Unknown]
